FAERS Safety Report 11811686 (Version 4)
Quarter: 2016Q1

REPORT INFORMATION
  Report Type: Report from Study
  Country: US (occurrence: US)
  Receive Date: 20151208
  Receipt Date: 20160127
  Transmission Date: 20160525
  Serious: Yes (Hospitalization, Other)
  Sender: FDA-Public Use
  Company Number: US-AMGEN-USACT2015129149

PATIENT
  Age: 58 Year
  Sex: Female
  Weight: 104.7 kg

DRUGS (22)
  1. PERIDEX [Concomitant]
     Active Substance: CHLORHEXIDINE GLUCONATE
     Dosage: 15 ML, QID
  2. DOXEPIN [Concomitant]
     Active Substance: DOXEPIN
     Dosage: 1 DF, QD
     Route: 048
  3. MARINOL [Concomitant]
     Active Substance: DRONABINOL
     Dosage: 5 MG, BID
     Route: 048
  4. HYDROCHLOROTHIAZIDE. [Concomitant]
     Active Substance: HYDROCHLOROTHIAZIDE
     Dosage: 25 MG, QD
     Route: 048
  5. LACTULOSE. [Concomitant]
     Active Substance: LACTULOSE
     Dosage: 10 G, AS NECESSARY
     Route: 048
  6. MAG-OX [Concomitant]
     Active Substance: MAGNESIUM OXIDE
     Dosage: 400 MG, QD
     Route: 048
  7. POTASSIUM CHLORIDE. [Concomitant]
     Active Substance: POTASSIUM CHLORIDE
     Dosage: 10 MEQ, BID
     Route: 048
  8. DECADRON [Concomitant]
     Active Substance: DEXAMETHASONE
     Dosage: 4 MG, QD
     Route: 048
  9. BISCODYL [Concomitant]
     Active Substance: BISACODYL
     Dosage: UNK UNK, AS NECESSARY
     Route: 048
  10. CALCIUM VITAMIN D3 [Concomitant]
     Dosage: UNK UNK, BID
     Route: 048
  11. MOMETASONE [Concomitant]
     Active Substance: MOMETASONE
     Dosage: UNK UNK, AS NECESSARY
     Route: 061
  12. MELPHALAN [Concomitant]
     Active Substance: MELPHALAN
     Indication: PLASMA CELL MYELOMA
     Dosage: 1000 ML IN 0.9 %NACL, PER CHEMO REGIM
     Route: 042
     Dates: start: 20151126
  13. ZOVIRAX [Concomitant]
     Active Substance: ACYCLOVIR
     Indication: ANTIVIRAL TREATMENT
     Dosage: 400 MG, BID
     Route: 048
  14. LEVAQUIN [Concomitant]
     Active Substance: LEVOFLOXACIN
     Dosage: 500 MG, QD
  15. DIFLUCAN [Concomitant]
     Active Substance: FLUCONAZOLE
     Dosage: UNK UNK, BID
     Route: 048
  16. CARFILZOMIB [Suspect]
     Active Substance: CARFILZOMIB
     Indication: PLASMA CELL MYELOMA
     Dosage: 100 ML IN D5, PER CHEMO REGIM
     Route: 042
     Dates: start: 20151124, end: 20151129
  17. AMBIEN [Concomitant]
     Active Substance: ZOLPIDEM TARTRATE
     Dosage: 10 MG, QD
     Route: 048
  18. SIMVASTATIN. [Concomitant]
     Active Substance: SIMVASTATIN
     Dosage: 40 MG, QD
     Route: 048
  19. ATIVAN [Concomitant]
     Active Substance: LORAZEPAM
     Dosage: 0.5 MG, UNK
     Route: 048
  20. PENICILLIN V POTASSIUM. [Concomitant]
     Active Substance: PENICILLIN V POTASSIUM
     Dosage: 500 MG, BID
     Route: 048
  21. PROCHLORPERAZINE. [Concomitant]
     Active Substance: PROCHLORPERAZINE
     Dosage: 5 MG, AS NECESSARY
     Route: 048
  22. SENNA LAXATIVE [Concomitant]
     Active Substance: SENNOSIDES
     Dosage: UNK UNK, AS NECESSARY
     Route: 048

REACTIONS (2)
  - Syncope [Recovered/Resolved]
  - Hypophosphataemia [Recovered/Resolved]

NARRATIVE: CASE EVENT DATE: 20151201
